FAERS Safety Report 20608981 (Version 1)
Quarter: 2022Q1

REPORT INFORMATION
  Report Type: Spontaneous
  Country: CN (occurrence: None)
  Receive Date: 20220317
  Receipt Date: 20220317
  Transmission Date: 20220423
  Serious: Yes (Other)
  Sender: FDA-Public Use
  Company Number: 2022A110260

PATIENT
  Age: 21053 Day
  Sex: Female
  Weight: 53 kg

DRUGS (2)
  1. OSIMERTINIB [Suspect]
     Active Substance: OSIMERTINIB
     Indication: Tumour treating fields therapy
     Route: 048
     Dates: start: 20220301
  2. WHITE BLOOD CELLS THERAPY [Concomitant]
     Indication: White blood cell count

REACTIONS (1)
  - Myelosuppression [Recovering/Resolving]

NARRATIVE: CASE EVENT DATE: 20220222
